FAERS Safety Report 8841677 (Version 1)
Quarter: 2012Q4

REPORT INFORMATION
  Report Type: 
  Country: US (occurrence: US)
  Receive Date: 20121015
  Receipt Date: 20121015
  Transmission Date: 20130627
  Serious: No
  Sender: FDA-Public Use
  Company Number: US-PFIZER INC-2012254378

PATIENT
  Age: 77 Year
  Sex: Female
  Weight: 103 kg

DRUGS (9)
  1. ZOLOFT [Suspect]
     Indication: DEPRESSION
     Dosage: 100 mg, Daily
     Dates: end: 201208
  2. LIPITOR [Suspect]
     Indication: BLOOD CHOLESTEROL INCREASED
     Dosage: 80 mg, Daily
     Dates: end: 201208
  3. GLUCOTROL [Suspect]
     Indication: DIABETES MELLITUS
     Dosage: 10 mg, 2x/day
     Dates: end: 201208
  4. AMLODIPINE [Concomitant]
     Indication: HYPERTENSION
     Dosage: 5 mg, daily
  5. LEVOTHYROXINE [Concomitant]
     Indication: THYROID DISORDER
     Dosage: 75 ug, daily
  6. GABAPENTIN [Concomitant]
     Indication: PAIN IN EXTREMITY
     Dosage: 300 mg, daily
  7. GABAPENTIN [Concomitant]
     Indication: ARTHRALGIA
  8. VITAMIN D [Concomitant]
     Indication: PAIN IN EXTREMITY
     Dosage: 50000 IU, weekly
  9. VITAMIN D [Concomitant]
     Indication: ARTHRALGIA

REACTIONS (3)
  - Nervousness [Not Recovered/Not Resolved]
  - Depression [Not Recovered/Not Resolved]
  - Crying [Not Recovered/Not Resolved]
